FAERS Safety Report 25191916 (Version 1)
Quarter: 2025Q2

REPORT INFORMATION
  Report Type: Spontaneous
  Country: BR (occurrence: BR)
  Receive Date: 20250414
  Receipt Date: 20250414
  Transmission Date: 20250717
  Serious: Yes (Other)
  Sender: AMGEN
  Company Number: BR-AMGEN-BRASP2025066759

PATIENT

DRUGS (1)
  1. VECTIBIX [Suspect]
     Active Substance: PANITUMUMAB
     Indication: Product used for unknown indication
     Route: 065

REACTIONS (4)
  - Drug-induced liver injury [Unknown]
  - Oxygen saturation decreased [Recovering/Resolving]
  - Confusional state [Recovering/Resolving]
  - Malaise [Recovering/Resolving]
